FAERS Safety Report 12648735 (Version 2)
Quarter: 2016Q3

REPORT INFORMATION
  Report Type: Spontaneous
  Country: US (occurrence: US)
  Receive Date: 20160812
  Receipt Date: 20160830
  Transmission Date: 20161109
  Serious: No
  Sender: FDA-Public Use
  Company Number: US-ASTRAZENECA-2016SE85987

PATIENT
  Sex: Male
  Weight: 92.1 kg

DRUGS (1)
  1. SYMBICORT [Suspect]
     Active Substance: BUDESONIDE\FORMOTEROL FUMARATE DIHYDRATE
     Indication: CHRONIC OBSTRUCTIVE PULMONARY DISEASE
     Dosage: 80-4.5MCG, TWO PUFFS TWICE A DAY
     Route: 055
     Dates: start: 201607

REACTIONS (3)
  - Off label use [Unknown]
  - Vision blurred [Recovered/Resolved]
  - Drug dose omission [Unknown]
